FAERS Safety Report 22265314 (Version 1)
Quarter: 2023Q2

REPORT INFORMATION
  Report Type: Spontaneous
  Country: US (occurrence: None)
  Receive Date: 20230426
  Receipt Date: 20230426
  Transmission Date: 20230722
  Serious: No
  Sender: FDA-Public Use
  Company Number: None

PATIENT
  Age: 30 Year
  Sex: Female

DRUGS (1)
  1. XELODA [Suspect]
     Active Substance: CAPECITABINE
     Indication: Malignant neoplasm of thymus
     Dosage: FREQUENCY : TWICE A DAY;?

REACTIONS (1)
  - Norovirus infection [None]

NARRATIVE: CASE EVENT DATE: 20230410
